FAERS Safety Report 4923879-3 (Version None)
Quarter: 2006Q1

REPORT INFORMATION
  Report Type: 
  Country: None (occurrence: None)
  Receive Date: 20060221
  Receipt Date: 20060209
  Transmission Date: 20060701
  Serious: Yes (Hospitalization, Disabling)
  Sender: FDA-Public Use
  Company Number: 2005163744

PATIENT
  Age: 34 Year
  Sex: Female
  Weight: 45 kg

DRUGS (5)
  1. PONTAL (MEFENAMIC ACID) [Suspect]
     Indication: LYMPHADENITIS
     Dosage: 1000 MG (500 MG, 2 IN 1 D), ORAL
     Route: 048
     Dates: start: 20020823, end: 20020901
  2. MINOCYCLINE HCL [Suspect]
     Indication: LYMPHADENITIS
     Dosage: 200 MG (100 MG, 2 IN 1 D), ORAL
     Route: 048
     Dates: start: 20020906, end: 20020906
  3. FLOMOX (CEFCAPENE PIVOXIL HYDROCHLORIDE) [Concomitant]
  4. BETAMETHASONE [Concomitant]
  5. VOLTAREN [Concomitant]

REACTIONS (9)
  - CONVULSION [None]
  - DIZZINESS [None]
  - GASTROINTESTINAL DISORDER [None]
  - HEADACHE [None]
  - HYPOAESTHESIA [None]
  - LIVER DISORDER [None]
  - LYMPHADENOPATHY [None]
  - MYALGIA [None]
  - NEUROPATHY PERIPHERAL [None]
